FAERS Safety Report 7026657-7 (Version None)
Quarter: 2010Q4

REPORT INFORMATION
  Report Type: 
  Country: None (occurrence: None)
  Receive Date: 20101004
  Receipt Date: 20100920
  Transmission Date: 20110411
  Serious: Yes (Other)
  Sender: FDA-Public Use
  Company Number: US-SANOFI-AVENTIS-2010SA056786

PATIENT
  Age: 60 Year
  Sex: Male

DRUGS (10)
  1. MULTAQ [Suspect]
     Indication: ATRIAL FIBRILLATION
     Route: 048
     Dates: start: 20100708, end: 20100907
  2. CARDIZEM [Concomitant]
  3. COUMADIN [Concomitant]
  4. OXYCONTIN [Concomitant]
     Route: 048
  5. ALL OTHER THERAPEUTIC PRODUCTS [Concomitant]
  6. MORPHINE [Concomitant]
  7. PEPCID [Concomitant]
     Route: 048
  8. TORADOL [Concomitant]
  9. MILK OF MAGNESIA TAB [Concomitant]
  10. NEBIVOLOL [Concomitant]
     Route: 048

REACTIONS (10)
  - BRADYCARDIA [None]
  - BRAIN NATRIURETIC PEPTIDE INCREASED [None]
  - CARDIAC FAILURE CONGESTIVE [None]
  - LUNG INFILTRATION [None]
  - OFF LABEL USE [None]
  - OXYGEN SATURATION DECREASED [None]
  - PNEUMONIA [None]
  - PULMONARY OEDEMA [None]
  - PYREXIA [None]
  - TACHYCARDIA [None]
